FAERS Safety Report 7204517-6 (Version None)
Quarter: 2010Q4

REPORT INFORMATION
  Report Type: 
  Country: None (occurrence: None)
  Receive Date: 20101230
  Receipt Date: 20101216
  Transmission Date: 20110411
  Serious: Yes (Hospitalization)
  Sender: FDA-Public Use
  Company Number: PHHY2010IT85483

PATIENT
  Sex: Female

DRUGS (5)
  1. TAREG [Suspect]
     Indication: HYPERTENSION
     Dosage: 40 MG
     Route: 048
     Dates: start: 20090101, end: 20101003
  2. MICARDIS HCT [Suspect]
     Indication: HYPERTENSION
     Dosage: 80 MG/12.5 MG
     Route: 048
     Dates: start: 20090101
  3. DILATREND [Concomitant]
     Dosage: 1 POSOLOGIC UNIT
     Route: 048
  4. REMERON [Concomitant]
     Dosage: 15 MG
     Route: 048
  5. SERENASE [Concomitant]
     Dosage: 20 DROPS
     Route: 048

REACTIONS (2)
  - ELECTROLYTE IMBALANCE [None]
  - HYPONATRAEMIA [None]
